FAERS Safety Report 7560696-2 (Version None)
Quarter: 2011Q2

REPORT INFORMATION
  Report Type: 
  Country: None (occurrence: None)
  Receive Date: 20110621
  Receipt Date: 20110616
  Transmission Date: 20111010
  Serious: Yes (Hospitalization, Other)
  Sender: FDA-Public Use
  Company Number: US-PFIZER INC-2010006350

PATIENT
  Sex: Female

DRUGS (1)
  1. CHANTIX [Suspect]
     Indication: SMOKING CESSATION THERAPY
     Dosage: STARTER KIT 1 MG BOTTLE OF 56 TABLETS

REACTIONS (5)
  - INSOMNIA [None]
  - SUICIDE ATTEMPT [None]
  - ABNORMAL DREAMS [None]
  - DEPRESSION [None]
  - ANXIETY [None]
